FAERS Safety Report 16088467 (Version 1)
Quarter: 2019Q1

REPORT INFORMATION
  Report Type: Spontaneous
  Country: US (occurrence: US)
  Receive Date: 20190319
  Receipt Date: 20190319
  Transmission Date: 20190418
  Serious: No
  Sender: FDA-Public Use
  Company Number: US-PFIZER INC-2019105668

PATIENT
  Sex: Male

DRUGS (1)
  1. DEPO-TESTOSTERONE [Suspect]
     Active Substance: TESTOSTERONE CYPIONATE
     Indication: POST-TRAUMATIC STRESS DISORDER
     Dosage: 200 MG, EVERY 2 WEEKS

REACTIONS (2)
  - Product use in unapproved indication [Unknown]
  - Mood altered [Unknown]
